FAERS Safety Report 11837057 (Version 3)
Quarter: 2016Q1

REPORT INFORMATION
  Report Type: Report from Study
  Country: US (occurrence: US)
  Receive Date: 20151215
  Receipt Date: 20160328
  Transmission Date: 20160525
  Serious: Yes (Hospitalization, Other)
  Sender: FDA-Public Use
  Company Number: US-BAYER-2015-463685

PATIENT
  Age: 50 Year
  Sex: Male

DRUGS (2)
  1. NEXAVAR [Suspect]
     Active Substance: SORAFENIB
     Indication: ACUTE MYELOID LEUKAEMIA
     Dosage: 200 MG, QD
     Route: 048
  2. NEXAVAR [Suspect]
     Active Substance: SORAFENIB
     Indication: ACUTE MYELOID LEUKAEMIA
     Dosage: 400 MG, BID
     Route: 048
     Dates: start: 20151022

REACTIONS (11)
  - Activities of daily living impaired [None]
  - Asthenia [None]
  - Off label use [None]
  - Malaise [None]
  - Diarrhoea [None]
  - Drug dose omission [None]
  - Dry skin [None]
  - Laboratory test abnormal [None]
  - Therapy cessation [None]
  - Seizure [None]
  - Fatigue [None]
